FAERS Safety Report 19202524 (Version 5)
Quarter: 2021Q2

REPORT INFORMATION
  Report Type: Spontaneous
  Country: BR (occurrence: BR)
  Receive Date: 20210430
  Receipt Date: 20210614
  Transmission Date: 20210717
  Serious: Yes (Congenital Anomaly, Other)
  Sender: FDA-Public Use
  Company Number: BR-BIOMARINAP-BR-2021-136273

PATIENT
  Age: 18 Year
  Sex: Female
  Weight: 25 kg

DRUGS (1)
  1. VIMIZIM [Suspect]
     Active Substance: ELOSULFASE ALFA
     Indication: MUCOPOLYSACCHARIDOSIS IV
     Dosage: UNK UNK, QW
     Route: 042
     Dates: start: 201801

REACTIONS (12)
  - Kyphosis [Recovering/Resolving]
  - Cartilage injury [Not Recovered/Not Resolved]
  - Pain [Not Recovered/Not Resolved]
  - Gait disturbance [Not Recovered/Not Resolved]
  - Joint range of motion decreased [Recovering/Resolving]
  - Spinal disorder [Recovered/Resolved]
  - Arthralgia [Not Recovered/Not Resolved]
  - Carpal tunnel syndrome [Recovering/Resolving]
  - Osteochondrosis [Not Recovered/Not Resolved]
  - Pain in extremity [Recovering/Resolving]
  - Joint dislocation [Not Recovered/Not Resolved]
  - Limb operation [Recovered/Resolved]
